FAERS Safety Report 7099621-X (Version None)
Quarter: 2010Q4

REPORT INFORMATION
  Report Type: 
  Country: None (occurrence: None)
  Receive Date: 20101112
  Receipt Date: 20101102
  Transmission Date: 20110411
  Serious: Yes (Other)
  Sender: FDA-Public Use
  Company Number: HK-JNJFOC-20101101258

PATIENT

DRUGS (4)
  1. STELARA [Suspect]
     Indication: PSORIASIS
     Route: 058
  2. STELARA [Suspect]
     Route: 058
  3. REMICADE [Suspect]
     Indication: PSORIASIS
     Route: 042
  4. METHOTREXATE [Concomitant]
     Indication: PSORIASIS

REACTIONS (1)
  - TUBERCULOSIS [None]
